FAERS Safety Report 15757817 (Version 2)
Quarter: 2024Q2

REPORT INFORMATION
  Report Type: Spontaneous
  Country: DE (occurrence: DE)
  Receive Date: 20181225
  Receipt Date: 20240502
  Transmission Date: 20240716
  Serious: Yes (Hospitalization, Other)
  Sender: FDA-Public Use
  Company Number: DE-CELLTRION INC.-2018DE024740

PATIENT

DRUGS (7)
  1. RITUXIMAB [Suspect]
     Active Substance: RITUXIMAB
     Indication: Chronic lymphocytic leukaemia
     Dosage: 775 MG, 5 INFUSIONS
     Route: 065
     Dates: start: 201702, end: 201711
  2. RITUXIMAB [Suspect]
     Active Substance: RITUXIMAB
     Indication: Gene mutation
     Dosage: UNK
  3. ZYDELIG [Suspect]
     Active Substance: IDELALISIB
     Indication: Gene mutation
     Dosage: UNK
     Route: 065
     Dates: start: 20170320, end: 20170410
  4. ZYDELIG [Suspect]
     Active Substance: IDELALISIB
     Indication: Chronic lymphocytic leukaemia
     Dosage: UNK
     Route: 048
     Dates: start: 20170201, end: 201712
  5. ZYDELIG [Suspect]
     Active Substance: IDELALISIB
     Dosage: 100 MG, BID
     Route: 065
     Dates: start: 20170417
  6. PANTOPRAZOLE [Concomitant]
     Active Substance: PANTOPRAZOLE
     Dosage: 40 MG, QD
  7. OPIPRAMOL [Concomitant]
     Active Substance: OPIPRAMOL
     Dosage: 50 MG, QD

REACTIONS (12)
  - Rectal haemorrhage [Unknown]
  - Pleural effusion [Unknown]
  - Hypokalaemia [Unknown]
  - Hypochromic anaemia [Unknown]
  - Pneumonia influenzal [Unknown]
  - Gastroenteritis norovirus [Unknown]
  - Oedema peripheral [Unknown]
  - Gastroenteritis norovirus [Unknown]
  - Diarrhoea [Unknown]
  - Viral infection [Unknown]
  - Intentional product use issue [Unknown]
  - Overdose [Unknown]

NARRATIVE: CASE EVENT DATE: 20170410
